FAERS Safety Report 5726378-4 (Version None)
Quarter: 2008Q2

REPORT INFORMATION
  Report Type: 
  Country: None (occurrence: None)
  Receive Date: 20080502
  Receipt Date: 20080424
  Transmission Date: 20081010
  Serious: Yes (Hospitalization, Other)
  Sender: FDA-Public Use
  Company Number: GT-AVENTIS-200715644GDDC

PATIENT
  Age: 31 Year
  Sex: Female
  Weight: 41 kg

DRUGS (2)
  1. ARAVA [Suspect]
     Indication: ARTHRITIS
     Route: 048
     Dates: start: 20070419, end: 20070605
  2. UNKNOWN DRUG [Suspect]
     Indication: TYPHOID FEVER
     Dosage: DOSE: UNK

REACTIONS (3)
  - DRUG EXPOSURE DURING PREGNANCY [None]
  - INTRA-UTERINE DEATH [None]
  - TYPHOID FEVER [None]
